FAERS Safety Report 8304904-9 (Version None)
Quarter: 2012Q2

REPORT INFORMATION
  Report Type: 
  Country: None (occurrence: None)
  Receive Date: 20120423
  Receipt Date: 20120413
  Transmission Date: 20120825
  Serious: Yes (Death)
  Sender: FDA-Public Use
  Company Number: JP-CUBIST-2012S1000299

PATIENT
  Age: 82 Year
  Sex: Male

DRUGS (8)
  1. CUBICIN [Suspect]
     Indication: STAPHYLOCOCCAL SEPSIS
     Route: 041
     Dates: start: 20120306, end: 20120311
  2. ALL OTHER THERAPEUTIC PRODUCTS [Concomitant]
     Indication: PRODUCT USED FOR UNKNOWN INDICATION
     Route: 042
     Dates: start: 20120227, end: 20120308
  3. CLINDAMYCIN [Concomitant]
     Indication: PRODUCT USED FOR UNKNOWN INDICATION
     Dosage: DOSE UNIT:U
  4. CEFOTAXIME [Concomitant]
     Indication: PNEUMONIA
     Route: 042
     Dates: start: 20120306, end: 20120308
  5. VANCOMYCIN [Concomitant]
     Indication: SEPSIS
     Dosage: DOSE UNIT:U UNKNOWN
     Route: 065
  6. IMIPENEM/CILASTATIN [Concomitant]
     Indication: PRODUCT USED FOR UNKNOWN INDICATION
     Dosage: DOSE UNIT:U
  7. TEICOPLANIN [Concomitant]
     Indication: STAPHYLOCOCCAL SEPSIS
     Dosage: DOSE UNIT:U UNKNOWN
     Route: 065
     Dates: start: 20120211, end: 20120305
  8. HANP [Concomitant]
     Indication: CARDIAC FAILURE
     Route: 042
     Dates: start: 20120305, end: 20120306

REACTIONS (1)
  - STAPHYLOCOCCAL SEPSIS [None]
